FAERS Safety Report 6923808-7 (Version None)
Quarter: 2010Q3

REPORT INFORMATION
  Report Type: 
  Country: None (occurrence: None)
  Receive Date: 20100813
  Receipt Date: 20100725
  Transmission Date: 20110219
  Serious: Yes (Hospitalization)
  Sender: FDA-Public Use
  Company Number: PHHY2010US43465

PATIENT
  Sex: Female
  Weight: 59.1 kg

DRUGS (6)
  1. ZOMETA [Suspect]
     Indication: BREAST CANCER METASTATIC
     Dosage: 4 MG, QMO
     Route: 042
     Dates: start: 20080229
  2. LIPITOR [Concomitant]
     Indication: BLOOD CHOLESTEROL INCREASED
     Dosage: 20 MG, QD
     Route: 048
  3. NEXIUM [Concomitant]
     Indication: GASTROOESOPHAGEAL REFLUX DISEASE
     Dosage: 40 MG, QD
     Route: 048
  4. CYMBALTA [Concomitant]
     Dosage: 40 MG, UNK
     Route: 048
  5. ASPIRIN [Concomitant]
     Dosage: 81 MG, QD
  6. SYNTHROID [Concomitant]
     Indication: HYPERTHYROIDISM
     Dosage: 0.05 MG, QD

REACTIONS (5)
  - BONE DISORDER [None]
  - JAW OPERATION [None]
  - OSTEOMYELITIS [None]
  - OSTEONECROSIS OF JAW [None]
  - TOOTH EXTRACTION [None]
